FAERS Safety Report 26142966 (Version 1)
Quarter: 2025Q4

REPORT INFORMATION
  Report Type: Spontaneous
  Country: IL (occurrence: IL)
  Receive Date: 20251211
  Receipt Date: 20251211
  Transmission Date: 20260118
  Serious: Yes (Hospitalization, Other)
  Sender: SANDOZ
  Company Number: IL-SANDOZ-SDZ2025IL093150

PATIENT
  Age: 78 Year
  Sex: Female

DRUGS (1)
  1. CEFAZOLIN [Suspect]
     Active Substance: CEFAZOLIN
     Indication: Staphylococcal infection
     Dosage: 2 G, TID (HIGH-DOSE IV)
     Route: 042

REACTIONS (1)
  - Coagulopathy [Recovered/Resolved]
